FAERS Safety Report 9739275 (Version 1)
Quarter: 2013Q4

REPORT INFORMATION
  Report Type: Spontaneous
  Country: US (occurrence: US)
  Receive Date: 20131209
  Receipt Date: 20131209
  Transmission Date: 20140711
  Serious: No
  Sender: FDA-Public Use
  Company Number: US-PFIZER INC-2013350130

PATIENT
  Age: 44 Year
  Sex: Female
  Weight: 58.96 kg

DRUGS (1)
  1. PREMPRO [Suspect]
     Indication: HORMONE REPLACEMENT THERAPY
     Dosage: 0.3 MG / 1.5 MG, 1X/DAY
     Route: 048
     Dates: start: 2011

REACTIONS (3)
  - Skin odour abnormal [Recovered/Resolved]
  - Vaginal odour [Recovered/Resolved]
  - Vaginal pH abnormal [Recovered/Resolved]
